FAERS Safety Report 19649666 (Version 1)
Quarter: 2021Q3

REPORT INFORMATION
  Report Type: Spontaneous
  Country: GB (occurrence: GB)
  Receive Date: 20210803
  Receipt Date: 20210803
  Transmission Date: 20211014
  Serious: Yes (Hospitalization, Other)
  Sender: FDA-Public Use
  Company Number: GB-ALVOGEN-2021-ALVOGEN-117282

PATIENT
  Age: 69 Year

DRUGS (2)
  1. ESTRADIOL. [Suspect]
     Active Substance: ESTRADIOL
     Indication: TRANSGENDER HORMONAL THERAPY
     Dosage: 2.5 MG TWO TIMES A DAY (5 MG/DAY) SINCE AT LEAST 2012
  2. CYPROTERONE ACETATE [Suspect]
     Active Substance: CYPROTERONE ACETATE
     Indication: TRANSGENDER HORMONAL THERAPY
     Dosage: 100 MG TWO TIMES A DAY (200 MG/DAY), SINCE AT LEAST 2012.

REACTIONS (1)
  - Meningioma [Recovering/Resolving]
